FAERS Safety Report 13817705 (Version 1)
Quarter: 2017Q3

REPORT INFORMATION
  Report Type: Spontaneous
  Country: US (occurrence: US)
  Receive Date: 20170731
  Receipt Date: 20170731
  Transmission Date: 20171127
  Serious: No
  Sender: FDA-Public Use
  Company Number: US-TEIKOKU PHARMA USA-TPU2017-00271

PATIENT
  Sex: Female
  Weight: 59.02 kg

DRUGS (3)
  1. SALONPAS PAIN RELIEF [Concomitant]
     Active Substance: MENTHOL\METHYL SALICYLATE
     Indication: MUSCULOSKELETAL PAIN
     Dosage: APPLY 2 PATCHES ON ARMS
     Dates: start: 2016
  2. LIDODERM [Suspect]
     Active Substance: LIDOCAINE
     Indication: PROCEDURAL PAIN
     Dosage: APPLY 1/2 PATCH ON EACH ARM OVER NIGHT, TAKE OFF IN THE MORNING
     Route: 061
     Dates: start: 20170427
  3. LIDODERM [Suspect]
     Active Substance: LIDOCAINE
     Indication: PAIN
     Dosage: APPLY PATCH TO THIGH
     Route: 061
     Dates: start: 20140910

REACTIONS (2)
  - Expired product administered [Unknown]
  - Drug ineffective for unapproved indication [Unknown]
